FAERS Safety Report 12503854 (Version 13)
Quarter: 2019Q1

REPORT INFORMATION
  Report Type: Report from Study
  Country: CA (occurrence: CA)
  Receive Date: 20160628
  Receipt Date: 20190213
  Transmission Date: 20190417
  Serious: Yes (Hospitalization, Other)
  Sender: FDA-Public Use
  Company Number: CA-PFIZER INC-2016305602

PATIENT
  Age: 70 Year
  Sex: Male
  Weight: 75 kg

DRUGS (20)
  1. VALACYCLOVIR [Suspect]
     Active Substance: VALACYCLOVIR HYDROCHLORIDE
     Indication: RASH
     Dosage: UNK
     Route: 042
     Dates: start: 201606
  2. ENTYVIO [Suspect]
     Active Substance: VEDOLIZUMAB
     Dosage: 300 MG, UNK
     Route: 042
  3. ENTYVIO [Suspect]
     Active Substance: VEDOLIZUMAB
     Dosage: 300 MG, UNK
     Route: 042
  4. ENTYVIO [Suspect]
     Active Substance: VEDOLIZUMAB
     Dosage: 300 MG, UNK
     Route: 042
  5. COVERSYL [PERINDOPRIL ERBUMINE] [Concomitant]
     Active Substance: PERINDOPRIL ERBUMINE
     Dosage: 2 MG, QD
     Route: 048
     Dates: start: 20160310
  6. ENTYVIO [Suspect]
     Active Substance: VEDOLIZUMAB
     Indication: CROHN^S DISEASE
     Dosage: 300 MG, UNK
     Route: 042
     Dates: start: 20160315
  7. ENTYVIO [Suspect]
     Active Substance: VEDOLIZUMAB
     Dosage: 300 MG, UNK
     Route: 042
  8. CODEINE W/PARACETAMOL [Suspect]
     Active Substance: ACETAMINOPHEN\CODEINE PHOSPHATE
     Indication: FACIAL PARALYSIS
     Dosage: UNK
     Route: 065
  9. TYLENOL WITH CODEINE [Suspect]
     Active Substance: ACETAMINOPHEN\CODEINE PHOSPHATE
     Indication: NEURALGIA
     Dosage: UNK
     Route: 065
  10. ENTOCORT [Concomitant]
     Active Substance: BUDESONIDE
     Indication: DIARRHOEA
  11. CODEINE W/PARACETAMOL [Suspect]
     Active Substance: ACETAMINOPHEN\CODEINE PHOSPHATE
     Indication: ABDOMINAL PAIN
  12. TYLENOL WITH CODEINE [Suspect]
     Active Substance: ACETAMINOPHEN\CODEINE PHOSPHATE
     Indication: MUSCLE SPASMS
  13. ENTOCORT [Concomitant]
     Active Substance: BUDESONIDE
     Indication: MUSCLE SPASMS
  14. CALCIUM + VIT D [Concomitant]
     Active Substance: CALCIUM\VITAMIN D
     Dosage: UNK
  15. TYLENOL WITH CODEINE [Concomitant]
     Active Substance: ACETAMINOPHEN\CODEINE PHOSPHATE
     Indication: ABDOMINAL PAIN
     Dosage: UNK
  16. VALACYCLOVIR [Suspect]
     Active Substance: VALACYCLOVIR HYDROCHLORIDE
     Indication: HERPES ZOSTER
     Dosage: UNK, BID
     Route: 042
     Dates: start: 20160622, end: 2016
  17. IMODIUM [Concomitant]
     Active Substance: LOPERAMIDE HYDROCHLORIDE
     Indication: DIARRHOEA
     Dosage: UNK
  18. TECTA [Suspect]
     Active Substance: PANTOPRAZOLE MAGNESIUM
     Dosage: 40 MG, QD
     Route: 048
  19. RISEDRONATE [Concomitant]
     Active Substance: RISEDRONATE SODIUM
     Dosage: UNK, 1/WEEK
  20. ENTOCORT [Concomitant]
     Active Substance: BUDESONIDE
     Indication: ABDOMINAL PAIN UPPER
     Dosage: 3 MG, QD
     Route: 048

REACTIONS (14)
  - Facial paralysis [Recovering/Resolving]
  - Condition aggravated [Recovering/Resolving]
  - Osteomyelitis [Unknown]
  - Vomiting [Unknown]
  - Nausea [Not Recovered/Not Resolved]
  - Pneumonia [Recovering/Resolving]
  - Palpitations [Not Recovered/Not Resolved]
  - Decreased appetite [Recovered/Resolved]
  - Fatigue [Not Recovered/Not Resolved]
  - Blood pressure increased [Unknown]
  - Eye infection [Unknown]
  - Abdominal pain upper [Not Recovered/Not Resolved]
  - Herpes zoster [Recovered/Resolved]
  - Weight decreased [Unknown]

NARRATIVE: CASE EVENT DATE: 2016
